FAERS Safety Report 25179688 (Version 1)
Quarter: 2025Q2

REPORT INFORMATION
  Report Type: Spontaneous
  Country: CN (occurrence: CN)
  Receive Date: 20250409
  Receipt Date: 20250409
  Transmission Date: 20250716
  Serious: Yes (Other)
  Sender: NOVARTIS
  Company Number: CN-002147023-NVSC2025CN055441

PATIENT
  Age: 32 Year
  Sex: Female

DRUGS (8)
  1. OCTREOTIDE [Suspect]
     Active Substance: OCTREOTIDE
     Indication: Pancreatitis acute
     Route: 065
  2. OCTREOTIDE [Suspect]
     Active Substance: OCTREOTIDE
  3. OCTREOTIDE [Suspect]
     Active Substance: OCTREOTIDE
  4. ESOMEPRAZOLE [Suspect]
     Active Substance: ESOMEPRAZOLE
     Indication: Pancreatitis acute
     Route: 065
  5. ULINASTATIN [Suspect]
     Active Substance: ULINASTATIN
     Indication: Pancreatitis acute
     Route: 065
  6. MEROPENEM [Suspect]
     Active Substance: MEROPENEM
     Indication: Anti-infective therapy
     Route: 065
  7. FENOFIBRATE [Suspect]
     Active Substance: FENOFIBRATE
     Indication: Hypertriglyceridaemia
     Route: 065
  8. EZETIMIBE [Suspect]
     Active Substance: EZETIMIBE
     Indication: Hypertriglyceridaemia
     Route: 065

REACTIONS (4)
  - Premature delivery [Unknown]
  - Premature rupture of membranes [Unknown]
  - Maternal exposure during pregnancy [Unknown]
  - Normal newborn [Unknown]
